FAERS Safety Report 9381248 (Version 3)
Quarter: 2015Q1

REPORT INFORMATION
  Report Type: Spontaneous
  Country: US (occurrence: US)
  Receive Date: 20130703
  Receipt Date: 20150105
  Transmission Date: 20150721
  Serious: Yes (Other)
  Sender: FDA-Public Use
  Company Number: US-PFIZER INC-2013195841

PATIENT
  Age: 79 Year
  Sex: Female
  Weight: 52 kg

DRUGS (3)
  1. PREDNISONE. [Concomitant]
     Active Substance: PREDNISONE
     Dosage: UNK
  2. CELEBREX [Suspect]
     Active Substance: CELECOXIB
     Indication: RHEUMATOID ARTHRITIS
     Dosage: UNK
  3. PRILOSEC [Concomitant]
     Active Substance: OMEPRAZOLE MAGNESIUM
     Indication: GASTRIC DISORDER

REACTIONS (6)
  - Visual impairment [Unknown]
  - Cerebrovascular accident [Unknown]
  - Peripheral swelling [Unknown]
  - Pain in extremity [Unknown]
  - Gait disturbance [Unknown]
  - Swelling face [Unknown]
